FAERS Safety Report 10162203 (Version 2)
Quarter: 2014Q2

REPORT INFORMATION
  Report Type: Spontaneous
  Country: US (occurrence: None)
  Receive Date: 20140507
  Receipt Date: 20140522
  Transmission Date: 20141212
  Serious: Yes (Life-Threatening)
  Sender: FDA-Public Use
  Company Number: AUR-APL-2014-05319

PATIENT
  Age: 65 Year
  Sex: Female
  Weight: 57 kg

DRUGS (13)
  1. CARVEDILOL [Suspect]
     Indication: HYPERTENSION
     Dosage: 50 MG (25 MG, 2 IN 1 D)
  2. LISINOPRIL + HYDROCHLOROTHIAZIDE [Suspect]
     Indication: HYPERTENSION
  3. PRAVASTATIN (PRAVASTATIN) [Concomitant]
  4. BUPROPRION (BUPROPION) [Concomitant]
  5. MIDAZOLAM (MIDAZOLAM) [Concomitant]
  6. FENTANYL (FENTANYL) [Concomitant]
  7. PROPOFOL (PROPOFOL) [Concomitant]
  8. ROCURONIUM (ROCURONIUM) [Concomitant]
  9. NITROUS OXIDE (NITROUS OXIDE) [Concomitant]
  10. OXYGEN (OXYGEN) [Concomitant]
  11. ISOFLURANE (ISOFLURANE) [Concomitant]
  12. REMIFENTANIL (REMIFENTANIL) [Concomitant]
  13. ASPIRIN (ACETYLSALICYLIC ACID) [Concomitant]

REACTIONS (10)
  - Hypotension [None]
  - Drug administration error [None]
  - Sinus bradycardia [None]
  - Mean arterial pressure decreased [None]
  - Cardiac arrest [None]
  - Cardiac arrest [None]
  - Atrioventricular block complete [None]
  - Mitral valve incompetence [None]
  - Tricuspid valve incompetence [None]
  - Procedural complication [None]
